FAERS Safety Report 10630252 (Version 2)
Quarter: 2014Q4

REPORT INFORMATION
  Report Type: Spontaneous
  Country: US (occurrence: US)
  Receive Date: 20141205
  Receipt Date: 20141205
  Transmission Date: 20150529
  Serious: No
  Sender: FDA-Public Use
  Company Number: US-BRISTOL-MYERS SQUIBB COMPANY-21395843

PATIENT
  Age: 66 Year
  Sex: Female
  Weight: 85.26 kg

DRUGS (2)
  1. BYDUREON [Suspect]
     Active Substance: EXENATIDE
     Indication: DIABETES MELLITUS
     Route: 058
     Dates: start: 20130604
  2. LANTUS [Concomitant]
     Active Substance: INSULIN GLARGINE
     Dosage: 1DF=40 UNIT NOS

REACTIONS (2)
  - Product quality issue [Unknown]
  - Injection site haemorrhage [Unknown]

NARRATIVE: CASE EVENT DATE: 20130604
